FAERS Safety Report 20580761 (Version 1)
Quarter: 2022Q1

REPORT INFORMATION
  Report Type: Spontaneous
  Country: KR (occurrence: KR)
  Receive Date: 20220311
  Receipt Date: 20220311
  Transmission Date: 20220424
  Serious: Yes (Hospitalization, Other)
  Sender: FDA-Public Use
  Company Number: KR-009507513-KR20220300106

PATIENT
  Age: 61 Year
  Sex: Male
  Weight: 66 kg

DRUGS (25)
  1. KEYTRUDA [Suspect]
     Active Substance: PEMBROLIZUMAB
     Dosage: 200 MG IV EVERY 3 WEEKS
     Route: 042
     Dates: start: 20200210, end: 20200210
  2. KEYTRUDA [Suspect]
     Active Substance: PEMBROLIZUMAB
     Dosage: 200 MG IV EVERY 3 WEEKS
     Route: 042
     Dates: start: 20200302, end: 20200302
  3. KEYTRUDA [Suspect]
     Active Substance: PEMBROLIZUMAB
     Dosage: 200 MG IV EVERY 3 WEEKS
     Route: 042
     Dates: start: 20200323, end: 20200323
  4. KEYTRUDA [Suspect]
     Active Substance: PEMBROLIZUMAB
     Dosage: 200 MG IV EVERY 3 WEEKS
     Route: 042
     Dates: start: 20200420, end: 20200420
  5. KEYTRUDA [Suspect]
     Active Substance: PEMBROLIZUMAB
     Dosage: 200 MG IV EVERY 3 WEEKS
     Route: 042
     Dates: start: 20200511, end: 20200511
  6. KEYTRUDA [Suspect]
     Active Substance: PEMBROLIZUMAB
     Dosage: 200 MG IV EVERY 3 WEEKS
     Route: 042
     Dates: start: 20200601, end: 20200601
  7. KEYTRUDA [Suspect]
     Active Substance: PEMBROLIZUMAB
     Dosage: 200 MG IV EVERY 3 WEEKS
     Route: 042
     Dates: start: 20200629, end: 20200629
  8. KEYTRUDA [Suspect]
     Active Substance: PEMBROLIZUMAB
     Dosage: 200 MG IV EVERY 3 WEEKS
     Route: 042
     Dates: start: 20200720, end: 20200720
  9. KEYTRUDA [Suspect]
     Active Substance: PEMBROLIZUMAB
     Dosage: 200 MG IV EVERY 3 WEEKS
     Route: 042
     Dates: start: 20200810, end: 20200810
  10. KEYTRUDA [Suspect]
     Active Substance: PEMBROLIZUMAB
     Dosage: 200 MG IV EVERY 3 WEEKS
     Route: 042
     Dates: start: 20200907, end: 20200907
  11. KEYTRUDA [Suspect]
     Active Substance: PEMBROLIZUMAB
     Dosage: 200 MG IV EVERY 3 WEEKS
     Route: 042
     Dates: start: 20200928, end: 20200928
  12. KEYTRUDA [Suspect]
     Active Substance: PEMBROLIZUMAB
     Dosage: 200 MG IV EVERY 3 WEEKS
     Route: 042
     Dates: start: 20201019, end: 20201019
  13. KEYTRUDA [Suspect]
     Active Substance: PEMBROLIZUMAB
     Dosage: 200 MG IV EVERY 3 WEEKS
     Route: 042
     Dates: start: 20201116, end: 20201116
  14. KEYTRUDA [Suspect]
     Active Substance: PEMBROLIZUMAB
     Dosage: 200 MG IV EVERY 3 WEEKS
     Route: 042
     Dates: start: 20201207, end: 20201207
  15. KEYTRUDA [Suspect]
     Active Substance: PEMBROLIZUMAB
     Dosage: 200 MG IV EVERY 3 WEEKS
     Route: 042
     Dates: start: 20201228, end: 20201228
  16. KEYTRUDA [Suspect]
     Active Substance: PEMBROLIZUMAB
     Dosage: 200 MG IV EVERY 3 WEEKS
     Route: 042
     Dates: start: 20210118, end: 20210118
  17. KEYTRUDA [Suspect]
     Active Substance: PEMBROLIZUMAB
     Dosage: 200 MG IV EVERY 3 WEEKS
     Route: 042
     Dates: start: 20210208, end: 20210208
  18. MOSAPRIDE CITRATE [Concomitant]
     Active Substance: MOSAPRIDE CITRATE
     Indication: Prophylaxis
     Dosage: 1 TAB, PO; FREQUENCY(/DAY): 2
     Route: 048
     Dates: start: 20190701
  19. LANSOPRAZOLE [Concomitant]
     Active Substance: LANSOPRAZOLE
     Indication: Prophylaxis
     Dosage: 1 CAP,PO; FREQUENCY(/DAY): 1
     Route: 048
     Dates: start: 20190620
  20. LANSOPRAZOLE [Concomitant]
     Active Substance: LANSOPRAZOLE
     Dosage: 15MG, QD
     Route: 048
     Dates: start: 20200629, end: 20210429
  21. CODAEWON FORTE [Concomitant]
     Indication: Prophylaxis
     Dosage: 1 PACK, PO; FREQUENCY(/DAY): 3
     Route: 048
     Dates: start: 20190620
  22. LEVODROPROPIZINE [Concomitant]
     Active Substance: LEVODROPROPIZINE
     Indication: Prophylaxis
     Dosage: 1 TAB, PO; FREQUENCY(/DAY): 3
     Route: 048
     Dates: start: 20190612
  23. VAHELVA RESPIMAT [Concomitant]
     Indication: Chronic obstructive pulmonary disease
     Dosage: 1 TIMES, INHALATION; FREQUENCY(/DAY): 1
     Dates: start: 20190701
  24. TWOLION [Concomitant]
     Indication: Rhinitis allergic
     Dosage: 20 MG,PO; FREQUENCY(/DAY): BID
     Route: 048
     Dates: start: 20200629, end: 20210303
  25. XYZAL [Concomitant]
     Active Substance: LEVOCETIRIZINE DIHYDROCHLORIDE
     Indication: Rhinitis allergic
     Dosage: 5 MG, PO; FREQUENCY(/DAY): QD
     Route: 048
     Dates: start: 20200720, end: 20210303

REACTIONS (2)
  - Clostridium difficile colitis [Recovered/Resolved]
  - Cytomegalovirus colitis [Recovered/Resolved]

NARRATIVE: CASE EVENT DATE: 20210223
